FAERS Safety Report 20105426 (Version 1)
Quarter: 2021Q4

REPORT INFORMATION
  Report Type: Spontaneous
  Country: US (occurrence: US)
  Receive Date: 20211124
  Receipt Date: 20211124
  Transmission Date: 20220303
  Serious: Yes (Death, Hospitalization)
  Sender: FDA-Public Use
  Company Number: US-NOVARTISPH-NVSC2021US267770

PATIENT
  Age: 79 Year
  Sex: Female

DRUGS (4)
  1. RANITIDINE [Suspect]
     Active Substance: RANITIDINE
     Indication: Dysphagia
     Dosage: 150 MG, QD
     Route: 048
     Dates: start: 201001, end: 201311
  2. RANITIDINE [Suspect]
     Active Substance: RANITIDINE
     Indication: Chest pain
  3. RANITIDINE [Suspect]
     Active Substance: RANITIDINE
     Indication: Dysphagia
     Dosage: 150 MG, QD
     Route: 048
     Dates: start: 201001, end: 201311
  4. RANITIDINE [Suspect]
     Active Substance: RANITIDINE
     Indication: Chest pain

REACTIONS (2)
  - Oesophageal carcinoma [Fatal]
  - Product use in unapproved indication [Unknown]

NARRATIVE: CASE EVENT DATE: 20131003
